FAERS Safety Report 10747088 (Version 1)
Quarter: 2015Q1

REPORT INFORMATION
  Report Type: Spontaneous
  Country: TW (occurrence: TW)
  Receive Date: 20150129
  Receipt Date: 20150129
  Transmission Date: 20150721
  Serious: Yes (Death, Hospitalization)
  Sender: FDA-Public Use
  Company Number: TW-AMGEN-TWNSP2015007859

PATIENT
  Age: 78 Year
  Sex: Female

DRUGS (10)
  1. BENZYLPENICILLIN POTASSIUM [Concomitant]
     Active Substance: PENICILLIN G POTASSIUM
     Indication: PARKINSON^S DISEASE
     Dosage: 100 MG, 1X/DAY
  2. SENNOSIDE                          /00571901/ [Concomitant]
     Active Substance: SENNOSIDES A AND B
     Indication: CONSTIPATION
     Dosage: 2 DF, DAILY AT BEDTIME
  3. EURODIN                            /00425901/ [Concomitant]
     Active Substance: ESTAZOLAM
     Indication: PARKINSON^S DISEASE
     Dosage: 1 DF, AS NEEDED
  4. ENBREL [Suspect]
     Active Substance: ETANERCEPT
     Indication: RHEUMATOID ARTHRITIS
     Dosage: 25 MG, 2X/WEEK
     Route: 058
     Dates: start: 201212, end: 20140924
  5. RIVOTRIL [Concomitant]
     Active Substance: CLONAZEPAM
     Indication: PARKINSON^S DISEASE
     Dosage: 0.5 MG, 1X/DAY AT BEDTIME
  6. SINEMET [Concomitant]
     Active Substance: CARBIDOPA\LEVODOPA
     Indication: PARKINSON^S DISEASE
     Dosage: 1 DF, 2X/DAY
  7. PREDNISONE. [Concomitant]
     Active Substance: PREDNISONE
     Indication: RHEUMATOID ARTHRITIS
     Dosage: 5 MG, 1X/DAY
     Route: 048
  8. QUETIAPINE [Concomitant]
     Active Substance: QUETIAPINE
     Indication: PARKINSON^S DISEASE
     Dosage: 300 MG, 1X/DAY AT BEDTIME
  9. STROCAIN                           /00130301/ [Concomitant]
     Dosage: 1 DF, 2X/DAY
  10. EURODIN                            /00425901/ [Concomitant]
     Active Substance: ESTAZOLAM
     Dosage: 1 DF, 1X/DAY AT BEDTIME

REACTIONS (2)
  - Cardiac arrest [Fatal]
  - Loss of consciousness [Fatal]

NARRATIVE: CASE EVENT DATE: 20140930
